FAERS Safety Report 5828136-9 (Version None)
Quarter: 2008Q3

REPORT INFORMATION
  Report Type: 
  Country: None (occurrence: None)
  Receive Date: 20080731
  Receipt Date: 20080728
  Transmission Date: 20090109
  Serious: Yes (Other)
  Sender: FDA-Public Use
  Company Number: CH-JNJFOC-20080705376

PATIENT
  Age: 7 Decade
  Sex: Female

DRUGS (5)
  1. DOXORUBICIN HCL [Suspect]
     Indication: BREAST CANCER METASTATIC
     Route: 042
  2. AVASTIN [Suspect]
     Indication: BREAST CANCER METASTATIC
     Route: 042
  3. PRIMAL MEPHA [Concomitant]
     Route: 048
  4. METFORMIN HCL [Concomitant]
     Route: 048
  5. PANTOPRAZOLE SODIUM [Concomitant]
     Route: 048

REACTIONS (2)
  - DYSPNOEA [None]
  - PLEURAL EFFUSION [None]
